FAERS Safety Report 12802407 (Version 1)
Quarter: 2016Q4

REPORT INFORMATION
  Report Type: Spontaneous
  Country: US (occurrence: US)
  Receive Date: 20161001
  Receipt Date: 20161001
  Transmission Date: 20170207
  Serious: No
  Sender: FDA-Public Use
  Company Number: None

PATIENT
  Age: 22 Year
  Sex: Female
  Weight: 74.84 kg

DRUGS (2)
  1. NEXPLANON [Suspect]
     Active Substance: ETONOGESTREL
     Indication: CONTRACEPTION
  2. SYNTHROID [Concomitant]
     Active Substance: LEVOTHYROXINE SODIUM

REACTIONS (7)
  - Decreased appetite [None]
  - Ovarian cyst [None]
  - Abdominal pain [None]
  - Change of bowel habit [None]
  - Breast enlargement [None]
  - Headache [None]
  - Breast pain [None]

NARRATIVE: CASE EVENT DATE: 20151222
